FAERS Safety Report 25723766 (Version 1)
Quarter: 2025Q3

REPORT INFORMATION
  Report Type: Spontaneous
  Country: IN (occurrence: IN)
  Receive Date: 20250825
  Receipt Date: 20250825
  Transmission Date: 20251020
  Serious: Yes (Other)
  Sender: NOVARTIS
  Company Number: IN-002147023-NVSC2025IN128884

PATIENT
  Age: 37 Year
  Sex: Female

DRUGS (15)
  1. MIDOSTAURIN [Suspect]
     Active Substance: MIDOSTAURIN
     Indication: Acute myeloid leukaemia
     Dosage: 50 MG, BID, FROM DAY +8
     Route: 065
  2. MIDOSTAURIN [Suspect]
     Active Substance: MIDOSTAURIN
     Dosage: 50 MG, BID, FROM DAY +8
     Route: 065
  3. MIDOSTAURIN [Suspect]
     Active Substance: MIDOSTAURIN
     Dosage: 50 MG, BID, FROM DAY +8
     Route: 065
  4. MIDOSTAURIN [Suspect]
     Active Substance: MIDOSTAURIN
     Dosage: 50 MG, BID, FROM DAY +8
     Route: 065
  5. POSACONAZOLE [Concomitant]
     Active Substance: POSACONAZOLE
     Indication: Antifungal prophylaxis
     Route: 065
  6. SORAFENIB [Concomitant]
     Active Substance: SORAFENIB
     Indication: Acute myeloid leukaemia
     Route: 065
  7. HYDROXYUREA [Concomitant]
     Active Substance: HYDROXYUREA
     Indication: Acute myeloid leukaemia
     Route: 065
  8. DAUNORUBICIN [Concomitant]
     Active Substance: DAUNORUBICIN
     Indication: Acute myeloid leukaemia
     Route: 065
  9. CYTARABINE [Concomitant]
     Active Substance: CYTARABINE
     Indication: Acute myeloid leukaemia
     Route: 065
  10. CYTARABINE [Concomitant]
     Active Substance: CYTARABINE
     Dosage: BID, (3 GM/M2 GIVEN ON DAYS +1, +3, AND + 5)
     Route: 065
  11. CYTARABINE [Concomitant]
     Active Substance: CYTARABINE
     Route: 065
  12. CYTARABINE [Concomitant]
     Active Substance: CYTARABINE
     Route: 065
  13. AZACITIDINE [Concomitant]
     Active Substance: AZACITIDINE
     Indication: Acute myeloid leukaemia
     Route: 065
  14. AZACITIDINE [Concomitant]
     Active Substance: AZACITIDINE
     Dosage: 75 MG/M2, 28D (FOR ONE YEAR)
     Route: 065
  15. AMPHOTERICIN B [Concomitant]
     Active Substance: AMPHOTERICIN B
     Indication: Supportive care
     Route: 065

REACTIONS (13)
  - Acute kidney injury [Unknown]
  - Drug-induced liver injury [Unknown]
  - Hyperbilirubinaemia [Unknown]
  - Jaundice [Unknown]
  - Hypertransaminasaemia [Unknown]
  - Sepsis [Unknown]
  - Vomiting [Recovering/Resolving]
  - Pyrexia [Unknown]
  - Chills [Unknown]
  - Hypotension [Unknown]
  - Nausea [Recovering/Resolving]
  - Drug intolerance [Unknown]
  - Idiosyncratic drug reaction [Unknown]
